FAERS Safety Report 7285335-X (Version None)
Quarter: 2011Q1

REPORT INFORMATION
  Report Type: 
  Country: None (occurrence: None)
  Receive Date: 20110210
  Receipt Date: 20110204
  Transmission Date: 20110831
  Serious: Yes (Other)
  Sender: FDA-Public Use
  Company Number: CO-ROCHE-757775

PATIENT
  Sex: Male

DRUGS (4)
  1. CELLCEPT [Suspect]
     Indication: HEART TRANSPLANT
     Route: 048
     Dates: start: 20070605
  2. PREDNISOLONE [Concomitant]
     Indication: HEART TRANSPLANT
     Route: 048
  3. ATORVASTATINA [Concomitant]
     Indication: HEART TRANSPLANT
     Dosage: FREQUENCY: QD
     Route: 048
  4. EVEROLIMUS [Concomitant]
     Indication: HEART TRANSPLANT
     Dosage: FREQUENCY: QD
     Route: 048

REACTIONS (1)
  - TRANSPLANT REJECTION [None]
